FAERS Safety Report 12056716 (Version 1)
Quarter: 2016Q1

REPORT INFORMATION
  Report Type: Spontaneous
  Country: US (occurrence: US)
  Receive Date: 20160210
  Receipt Date: 20160210
  Transmission Date: 20160526
  Serious: No
  Sender: FDA-Public Use
  Company Number: US-TEVA-626379USA

PATIENT

DRUGS (1)
  1. ADENOSINE. [Suspect]
     Active Substance: ADENOSINE
     Indication: ARTERIOGRAM CORONARY
     Dosage: 3 MG/ML, 90 MG
     Route: 065

REACTIONS (1)
  - Atrioventricular block first degree [Unknown]
